FAERS Safety Report 13352459 (Version 1)
Quarter: 2017Q1

REPORT INFORMATION
  Report Type: Spontaneous
  Country: US (occurrence: US)
  Receive Date: 20170320
  Receipt Date: 20170320
  Transmission Date: 20170429
  Serious: No
  Sender: FDA-Public Use
  Company Number: US-ALLERGAN-1661018US

PATIENT
  Age: 79 Year
  Sex: Female

DRUGS (3)
  1. OXYBUTYNIN [Concomitant]
     Active Substance: OXYBUTYNIN
     Indication: HYPERTONIC BLADDER
     Dosage: UNK UNK, TID
     Route: 048
     Dates: end: 20160621
  2. METFORMIN [Concomitant]
     Active Substance: METFORMIN HYDROCHLORIDE
     Indication: DIABETES MELLITUS
     Dosage: UNK
     Route: 048
  3. OXYTROL [Suspect]
     Active Substance: OXYBUTYNIN
     Indication: HYPERTONIC BLADDER
     Dosage: UNK
     Route: 062
     Dates: start: 20160621

REACTIONS (2)
  - Drug ineffective [Unknown]
  - Erythema [Not Recovered/Not Resolved]
